FAERS Safety Report 17268121 (Version 1)
Quarter: 2020Q1

REPORT INFORMATION
  Report Type: Report from Study
  Country: None (occurrence: NL)
  Receive Date: 20200114
  Receipt Date: 20200114
  Transmission Date: 20200409
  Serious: Yes (Other)
  Sender: FDA-Public Use
  Company Number: NL-ABBVIE-20K-114-3228757-00

PATIENT
  Sex: Female

DRUGS (1)
  1. DUODOPA [Suspect]
     Active Substance: CARBIDOPA\LEVODOPA
     Indication: PARKINSON^S DISEASE
     Route: 050
     Dates: start: 20181105

REACTIONS (4)
  - Embedded device [Recovered/Resolved]
  - Stoma site reaction [Not Recovered/Not Resolved]
  - Device issue [Unknown]
  - Abdominal abscess [Not Recovered/Not Resolved]
